FAERS Safety Report 9300321 (Version 2)
Quarter: 2013Q3

REPORT INFORMATION
  Report Type: Spontaneous
  Country: US (occurrence: US)
  Receive Date: 20130521
  Receipt Date: 20130725
  Transmission Date: 20140515
  Serious: No
  Sender: FDA-Public Use
  Company Number: US-BAYER-2013-060889

PATIENT
  Sex: Female
  Weight: 56.69 kg

DRUGS (8)
  1. BETASERON [Suspect]
     Indication: MULTIPLE SCLEROSIS
     Dosage: 0.25 MG, QOD
     Route: 058
     Dates: start: 20090829, end: 20121001
  2. BETASERON [Suspect]
     Indication: MULTIPLE SCLEROSIS
     Dosage: 8 MIU, QOD
     Route: 058
     Dates: start: 20130529
  3. MS CONTIN [Concomitant]
     Dosage: 100 MG CR, UNK
  4. SOMA [Concomitant]
     Dosage: 250 MG, UNK
  5. PROZAC [Concomitant]
     Dosage: 10 MG, UNK
  6. OXYCODONE [Concomitant]
     Dosage: 5 MG, UNK
  7. CHLOROPHYLL [Concomitant]
     Dosage: 3 MG, UNK
  8. VITAMIN D [Concomitant]
     Dosage: 1000 U, UNK

REACTIONS (10)
  - Muscle spasms [Unknown]
  - Muscular weakness [Unknown]
  - Injection site reaction [Unknown]
  - Feeling abnormal [Unknown]
  - Depression [Unknown]
  - Pain [Not Recovered/Not Resolved]
  - Asthenia [Not Recovered/Not Resolved]
  - Coordination abnormal [Not Recovered/Not Resolved]
  - Gait disturbance [Not Recovered/Not Resolved]
  - Malaise [Not Recovered/Not Resolved]
